FAERS Safety Report 9552964 (Version 1)
Quarter: 2013Q3

REPORT INFORMATION
  Report Type: Spontaneous
  Country: US (occurrence: None)
  Receive Date: 20130724
  Receipt Date: 20130724
  Transmission Date: 20140515
  Serious: Yes (Other)
  Sender: FDA-Public Use
  Company Number: PHEH2012US020226

PATIENT
  Age: 53 Year
  Sex: Female

DRUGS (1)
  1. GLEEVEC [Suspect]
     Indication: NEOPLASM MALIGNANT
     Dosage: 400 MG, ONCE A DAY, ORAL
     Route: 048
     Dates: start: 20070417

REACTIONS (4)
  - Cellulitis [None]
  - Diarrhoea [None]
  - Local swelling [None]
  - Gout [None]
